FAERS Safety Report 16819866 (Version 3)
Quarter: 2019Q3

REPORT INFORMATION
  Report Type: Report from Study
  Country: None (occurrence: US)
  Receive Date: 20190917
  Receipt Date: 20190930
  Transmission Date: 20191005
  Serious: Yes (Hospitalization, Other)
  Sender: FDA-Public Use
  Company Number: US-ABBVIE-19K-163-2856877-00

PATIENT
  Age: 59 Year
  Sex: Female
  Weight: 98.52 kg

DRUGS (19)
  1. BENZONATATE. [Concomitant]
     Active Substance: BENZONATATE
     Indication: PRODUCT USED FOR UNKNOWN INDICATION
  2. ATORVASTATIN [Concomitant]
     Active Substance: ATORVASTATIN
     Indication: BLOOD CHOLESTEROL
  3. SERTRALINE [Concomitant]
     Active Substance: SERTRALINE HYDROCHLORIDE
     Indication: MENTAL DISORDER
  4. ZYRTEC [Concomitant]
     Active Substance: CETIRIZINE HYDROCHLORIDE
     Indication: PRODUCT USED FOR UNKNOWN INDICATION
  5. HUMIRA [Suspect]
     Active Substance: ADALIMUMAB
     Indication: RHEUMATOID ARTHRITIS
     Route: 058
     Dates: start: 201302
  6. DERMOTIC OIL [Concomitant]
     Indication: EAR INFECTION
  7. OXYBUTYNIN CHLORIDE. [Concomitant]
     Active Substance: OXYBUTYNIN CHLORIDE
     Indication: URINARY INCONTINENCE
  8. CETIRIZINE [Concomitant]
     Active Substance: CETIRIZINE HYDROCHLORIDE
     Indication: HYPERSENSITIVITY
  9. HUMIRA [Suspect]
     Active Substance: ADALIMUMAB
     Indication: RHEUMATOID ARTHRITIS
     Dosage: CITRATE FREE
     Route: 058
  10. TRAZODONE [Concomitant]
     Active Substance: TRAZODONE HYDROCHLORIDE
     Indication: INSOMNIA
  11. BENZONATATE. [Concomitant]
     Active Substance: BENZONATATE
     Indication: COUGH
  12. OLOPATADINE. [Concomitant]
     Active Substance: OLOPATADINE
     Indication: DRY EYE
  13. LOSARTAN. [Concomitant]
     Active Substance: LOSARTAN
     Indication: HYPERTENSION
  14. FERROUS SULFATE. [Concomitant]
     Active Substance: FERROUS SULFATE
     Indication: ANAEMIA
  15. VITAMIN D [Concomitant]
     Active Substance: VITAMIN D NOS
     Indication: VITAMIN D DEFICIENCY
  16. TIZANIDINE. [Concomitant]
     Active Substance: TIZANIDINE
     Indication: BACK PAIN
  17. CEPATAL [Concomitant]
     Indication: PRODUCT USED FOR UNKNOWN INDICATION
  18. TRAMADOL. [Concomitant]
     Active Substance: TRAMADOL
     Indication: PAIN
  19. FAMOTIDINE. [Concomitant]
     Active Substance: FAMOTIDINE
     Indication: ULCER

REACTIONS (20)
  - Joint dislocation [Not Recovered/Not Resolved]
  - Fall [Not Recovered/Not Resolved]
  - Wound complication [Unknown]
  - Pain [Recovering/Resolving]
  - Limb injury [Recovered/Resolved]
  - Injection site pain [Recovered/Resolved]
  - Wrist fracture [Recovered/Resolved]
  - Fungal skin infection [Recovering/Resolving]
  - Peripheral swelling [Recovering/Resolving]
  - Sinusitis [Recovering/Resolving]
  - Rash pruritic [Unknown]
  - Back pain [Recovering/Resolving]
  - Cough [Recovering/Resolving]
  - Blood pressure increased [Unknown]
  - Blood glucose decreased [Recovering/Resolving]
  - Ligament sprain [Unknown]
  - Rubber sensitivity [Unknown]
  - Migraine [Unknown]
  - Pruritus allergic [Unknown]
  - Pain [Not Recovered/Not Resolved]

NARRATIVE: CASE EVENT DATE: 201907
